FAERS Safety Report 6373712-0 (Version None)
Quarter: 2009Q3

REPORT INFORMATION
  Report Type: 
  Country: None (occurrence: None)
  Receive Date: 20090924
  Receipt Date: 20090423
  Transmission Date: 20100115
  Serious: No
  Sender: FDA-Public Use
  Company Number: US-ASTRAZENECA-2009UW10174

PATIENT
  Sex: Female

DRUGS (1)
  1. SEROQUEL XR [Suspect]
     Route: 048

REACTIONS (6)
  - DIARRHOEA [None]
  - FEELING ABNORMAL [None]
  - INSOMNIA [None]
  - MENTAL DISORDER [None]
  - MIGRAINE [None]
  - TACHYPHRENIA [None]
